FAERS Safety Report 8392528-7 (Version None)
Quarter: 2012Q2

REPORT INFORMATION
  Report Type: 
  Country: None (occurrence: None)
  Receive Date: 20120529
  Receipt Date: 20120517
  Transmission Date: 20120825
  Serious: Yes (Hospitalization, Disabling)
  Sender: FDA-Public Use
  Company Number: US-MERCK-1201USA01460

PATIENT
  Age: 50 Year
  Sex: Female

DRUGS (7)
  1. BONIVA [Suspect]
     Indication: OSTEOPOROSIS
     Route: 065
     Dates: start: 20060301, end: 20080401
  2. BONIVA [Suspect]
     Indication: OSTEOPENIA
     Route: 065
     Dates: start: 20060301, end: 20080401
  3. FOSAMAX [Suspect]
     Route: 048
     Dates: start: 20080101, end: 20100101
  4. FOSAMAX [Suspect]
     Indication: OSTEOPOROSIS
     Route: 048
     Dates: start: 20020221, end: 20100115
  5. HORMONES (UNSPECIFIED) [Concomitant]
     Route: 065
     Dates: start: 19780101, end: 20050101
  6. FOSAMAX [Suspect]
     Route: 048
     Dates: start: 20060301, end: 20061201
  7. GLUCOPHAGE [Concomitant]
     Route: 065
     Dates: start: 20000101

REACTIONS (12)
  - GASTRIC DISORDER [None]
  - BREAST CANCER [None]
  - VITAMIN D DEFICIENCY [None]
  - IMPAIRED HEALING [None]
  - FOOT FRACTURE [None]
  - LOW TURNOVER OSTEOPATHY [None]
  - BLOOD CHOLESTEROL INCREASED [None]
  - FEMUR FRACTURE [None]
  - APPENDIX DISORDER [None]
  - OVERDOSE [None]
  - THROMBOSIS [None]
  - ADVERSE EVENT [None]
